FAERS Safety Report 5241389-3 (Version None)
Quarter: 2007Q1

REPORT INFORMATION
  Report Type: 
  Country: None (occurrence: None)
  Receive Date: 20070215
  Receipt Date: 20070215
  Transmission Date: 20070707
  Serious: Yes (Hospitalization)
  Sender: FDA-Public Use
  Company Number: None

PATIENT
  Sex: Female
  Weight: 87.0906 kg

DRUGS (3)
  1. COENZYME Q10 [Suspect]
     Indication: CHEMOTHERAPY
     Dosage: 100MG PO TID
     Route: 048
     Dates: start: 20060701, end: 20061201
  2. COENZYME Q10 [Suspect]
     Indication: FATIGUE
     Dosage: 100MG PO TID
     Route: 048
     Dates: start: 20060701, end: 20061201
  3. PLACEBO [Suspect]

REACTIONS (2)
  - LOCALISED INFECTION [None]
  - PYREXIA [None]
